FAERS Safety Report 5884160-1 (Version None)
Quarter: 2008Q3

REPORT INFORMATION
  Report Type: 
  Country: None (occurrence: None)
  Receive Date: 20080911
  Receipt Date: 20080904
  Transmission Date: 20090109
  Serious: Yes (Other)
  Sender: FDA-Public Use
  Company Number: SPV1-2008-01906

PATIENT
  Sex: Female

DRUGS (1)
  1. ADDERALL XR 30 [Suspect]

REACTIONS (1)
  - DYSTONIA [None]
